FAERS Safety Report 22234922 (Version 1)
Quarter: 2023Q2

REPORT INFORMATION
  Report Type: Spontaneous
  Country: US (occurrence: None)
  Receive Date: 20230419
  Receipt Date: 20230419
  Transmission Date: 20230721
  Serious: No
  Sender: FDA-Public Use
  Company Number: None

PATIENT
  Age: 93 Year
  Sex: Male
  Weight: 92.08 kg

DRUGS (18)
  1. ABIRATERONE ACETATE [Suspect]
     Active Substance: ABIRATERONE ACETATE
     Indication: Prostate cancer
     Dosage: 1000MG DAILY ORAL
     Route: 048
     Dates: start: 202302
  2. ASPIRIN [Concomitant]
  3. VITAMIN B COMPLEX [Concomitant]
  4. DIETARY SUPPLEMENT\HERBALS\INDIAN FRANKINCENSE [Concomitant]
     Active Substance: DIETARY SUPPLEMENT\HERBALS\INDIAN FRANKINCENSE
  5. SERRATA [Concomitant]
  6. MULTI VITAMIN [Concomitant]
  7. EYE HEALTH AND LUTEIN [Concomitant]
  8. LASIX [Concomitant]
  9. LOSARTAN [Concomitant]
  10. LUPRON [Concomitant]
  11. NEPHRO-VITE [Concomitant]
  12. POTASSIUM [Concomitant]
  13. PRESERVISION AREDS [Concomitant]
  14. TAMSULOSIN [Concomitant]
  15. TUMERIC [Concomitant]
  16. VITAMIN C [Concomitant]
  17. VITMAIN D3 [Concomitant]
  18. XGEVA [Concomitant]
     Active Substance: DENOSUMAB

REACTIONS (2)
  - Fatigue [None]
  - Prostatic specific antigen increased [None]
